FAERS Safety Report 18777690 (Version 2)
Quarter: 2021Q1

REPORT INFORMATION
  Report Type: Spontaneous
  Country: US (occurrence: US)
  Receive Date: 20210123
  Receipt Date: 20210201
  Transmission Date: 20210419
  Serious: Yes (Life-Threatening, Hospitalization, Other)
  Sender: FDA-Public Use
  Company Number: US-TORRENT-00010673

PATIENT
  Sex: Male

DRUGS (3)
  1. ATORVASTATIN [Suspect]
     Active Substance: ATORVASTATIN
     Indication: HYPERLIPIDAEMIA
     Dosage: 20 MG PO DAILY FOR APPROX. 18 MONTHS
     Route: 048
  2. DURVALUMAB. [Suspect]
     Active Substance: DURVALUMAB
     Indication: NON-SMALL CELL LUNG CANCER
  3. ROSUVASTATIN. [Suspect]
     Active Substance: ROSUVASTATIN
     Indication: HYPERLIPIDAEMIA
     Dosage: 5 MG DAILY FOR 1 MONTH

REACTIONS (6)
  - Eyelid ptosis [Recovered/Resolved]
  - Drug intolerance [Unknown]
  - Myalgia [Unknown]
  - Myositis [Recovered/Resolved]
  - Myocarditis [Recovered/Resolved]
  - Toxicity to various agents [Recovered/Resolved]
